FAERS Safety Report 17508174 (Version 1)
Quarter: 2020Q1

REPORT INFORMATION
  Report Type: Spontaneous
  Country: US (occurrence: US)
  Receive Date: 20200305
  Receipt Date: 20200305
  Transmission Date: 20200409
  Serious: Yes (Hospitalization, Other)
  Sender: FDA-Public Use
  Company Number: US-009507513-2003USA001096

PATIENT
  Age: 92 Year
  Sex: Female

DRUGS (6)
  1. SINGULAIR [Concomitant]
     Active Substance: MONTELUKAST SODIUM
     Dosage: UNK
  2. FOSAMAX [Suspect]
     Active Substance: ALENDRONATE SODIUM
     Indication: OSTEOPOROSIS
     Dosage: 70 MILLIGRAM, QW (ONCE A WEEK)
     Route: 048
  3. FOSAMAX [Suspect]
     Active Substance: ALENDRONATE SODIUM
     Dosage: 70 MILLIGRAM, QW (ONCE A WEEK)
     Route: 048
  4. ASPIRIN. [Concomitant]
     Active Substance: ASPIRIN
     Dosage: UNK
  5. COZAAR [Concomitant]
     Active Substance: LOSARTAN POTASSIUM
     Dosage: UNK
  6. TYLENOL [Concomitant]
     Active Substance: ACETAMINOPHEN
     Dosage: UNK

REACTIONS (19)
  - Bladder cancer [Recovered/Resolved]
  - Urinary tract infection [Recovering/Resolving]
  - Ligament sprain [Recovering/Resolving]
  - Groin pain [Recovering/Resolving]
  - Constipation [Recovering/Resolving]
  - Loss of consciousness [Recovering/Resolving]
  - Fatigue [Recovering/Resolving]
  - Headache [Recovering/Resolving]
  - Limb injury [Recovering/Resolving]
  - Gastric infection [Recovering/Resolving]
  - Gastrooesophageal reflux disease [Recovering/Resolving]
  - Dyspepsia [Recovering/Resolving]
  - Dehydration [Recovering/Resolving]
  - Stress [Recovering/Resolving]
  - Depression [Recovering/Resolving]
  - Eye disorder [Recovering/Resolving]
  - Fall [Recovering/Resolving]
  - Myocardial infarction [Recovering/Resolving]
  - Sinus disorder [Recovering/Resolving]
